FAERS Safety Report 8049139-2 (Version None)
Quarter: 2012Q1

REPORT INFORMATION
  Report Type: 
  Country: None (occurrence: None)
  Receive Date: 20120117
  Receipt Date: 20120109
  Transmission Date: 20120608
  Serious: No
  Sender: FDA-Public Use
  Company Number: US-B.I. PHARMACEUTICALS,INC./RIDGEFIELD-2011-BP-17386BP

PATIENT
  Sex: Female

DRUGS (1)
  1. ZANTAC 75 [Suspect]
     Indication: DYSPEPSIA
     Route: 048

REACTIONS (4)
  - GLOSSODYNIA [None]
  - THROAT IRRITATION [None]
  - DYSPEPSIA [None]
  - PRODUCT TASTE ABNORMAL [None]
